FAERS Safety Report 6863656-X (Version None)
Quarter: 2010Q3

REPORT INFORMATION
  Report Type: 
  Country: None (occurrence: None)
  Receive Date: 20100721
  Receipt Date: 20080305
  Transmission Date: 20110219
  Serious: No
  Sender: FDA-Public Use
  Company Number: US-PFIZER INC-2008021328

PATIENT
  Sex: Female
  Weight: 81.8 kg

DRUGS (12)
  1. CHANTIX [Suspect]
     Indication: SMOKING CESSATION THERAPY
     Route: 048
     Dates: start: 20080212
  2. SYNTHROID [Concomitant]
     Indication: THYROID DISORDER
     Route: 048
  3. CHLORZOXAZONE [Concomitant]
     Indication: MUSCLE RELAXANT THERAPY
     Route: 048
  4. METHADONE HCL [Concomitant]
     Route: 048
  5. OXYCODONE [Concomitant]
     Route: 048
  6. CLONAZEPAM [Concomitant]
     Route: 048
  7. AMBIEN [Concomitant]
     Route: 048
  8. PREMARIN [Concomitant]
     Indication: HORMONE REPLACEMENT THERAPY
     Route: 048
  9. POTASSIUM CHLORIDE [Concomitant]
     Route: 048
  10. LASIX [Concomitant]
     Route: 048
  11. PLETAL [Concomitant]
     Indication: POOR PERIPHERAL CIRCULATION
     Route: 048
  12. BACTRIM DS [Concomitant]
     Route: 048

REACTIONS (3)
  - DRUG INEFFECTIVE [None]
  - HYPERPHAGIA [None]
  - WEIGHT INCREASED [None]
